FAERS Safety Report 4365921-7 (Version None)
Quarter: 2004Q2

REPORT INFORMATION
  Report Type: 
  Country: None (occurrence: None)
  Receive Date: 20040524
  Receipt Date: 20040315
  Transmission Date: 20050107
  Serious: No
  Sender: FDA-Public Use
  Company Number: SU-2004-002222

PATIENT
  Age: 87 Year
  Sex: Female

DRUGS (4)
  1. BENICAR [Suspect]
     Indication: HYPERTENSION
     Dosage: 20 MG QD PO
     Route: 048
     Dates: start: 20031201
  2. TOPROL-XL [Concomitant]
  3. ACTONEL [Concomitant]
  4. PROTONIX [Concomitant]

REACTIONS (2)
  - ALOPECIA [None]
  - COUGH [None]
